FAERS Safety Report 10814518 (Version 1)
Quarter: 2015Q1

REPORT INFORMATION
  Report Type: Report from Study
  Country: US (occurrence: US)
  Receive Date: 20150218
  Receipt Date: 20150218
  Transmission Date: 20150721
  Serious: No
  Sender: FDA-Public Use
  Company Number: US-ABBVIE-14K-163-1281324-00

PATIENT
  Age: 51 Year
  Sex: Female

DRUGS (4)
  1. PREDNISONE. [Concomitant]
     Active Substance: PREDNISONE
     Indication: PRODUCT USED FOR UNKNOWN INDICATION
     Dosage: ON WEEKLY TAPERING DOSE
  2. HUMIRA [Suspect]
     Active Substance: ADALIMUMAB
     Indication: RHEUMATOID ARTHRITIS
     Route: 065
     Dates: start: 201405
  3. METHOTREXATE [Concomitant]
     Active Substance: METHOTREXATE
     Dosage: 2 MG 8 TABLETS PER WEEK
     Dates: start: 20140915
  4. METHOTREXATE [Concomitant]
     Active Substance: METHOTREXATE
     Indication: RHEUMATOID ARTHRITIS

REACTIONS (7)
  - Rheumatoid arthritis [Recovering/Resolving]
  - Stress [Unknown]
  - Cystitis [Unknown]
  - Injection site discomfort [Unknown]
  - Fatigue [Unknown]
  - Injection site pain [Unknown]
  - Kidney infection [Unknown]

NARRATIVE: CASE EVENT DATE: 201409
